FAERS Safety Report 6435458-X (Version None)
Quarter: 2009Q4

REPORT INFORMATION
  Report Type: 
  Country: None (occurrence: None)
  Receive Date: 20091106
  Receipt Date: 20091026
  Transmission Date: 20100525
  Serious: Yes (Hospitalization)
  Sender: FDA-Public Use
  Company Number: 230192J09GRC

PATIENT
  Age: 14 Year
  Sex: Male

DRUGS (1)
  1. REBIF [Suspect]
     Indication: MULTIPLE SCLEROSIS
     Dosage: 22 MCG, 3 IN 1 WEEKS; SUBCUTANEOUS
     Route: 058

REACTIONS (1)
  - BLOOD CREATINE PHOSPHOKINASE INCREASED [None]
